FAERS Safety Report 6748564-7 (Version None)
Quarter: 2010Q2

REPORT INFORMATION
  Report Type: 
  Country: None (occurrence: None)
  Receive Date: 20100601
  Receipt Date: 20100325
  Transmission Date: 20101027
  Serious: Yes (Other)
  Sender: FDA-Public Use
  Company Number: US-BAYER-201023132NA

PATIENT
  Age: 37 Year
  Sex: Female
  Weight: 68 kg

DRUGS (1)
  1. YASMIN [Suspect]
     Indication: CONTRACEPTION
     Route: 048
     Dates: start: 20040801, end: 20090801

REACTIONS (1)
  - GALLBLADDER DISORDER [None]
